FAERS Safety Report 16279837 (Version 1)
Quarter: 2019Q2

REPORT INFORMATION
  Report Type: Spontaneous
  Country: US (occurrence: US)
  Receive Date: 20190401
  Receipt Date: 20190401
  Transmission Date: 20190711
  Serious: No
  Sender: FDA-Public Use
  Company Number: None

PATIENT
  Age: 66 Year
  Sex: Female

DRUGS (1)
  1. AVONEX [Suspect]
     Active Substance: INTERFERON BETA-1A
     Indication: MULTIPLE SCLEROSIS
     Route: 030
     Dates: start: 20161114

REACTIONS (4)
  - Injection site erythema [None]
  - Pain in extremity [None]
  - Injection site pain [None]
  - Musculoskeletal disorder [None]

NARRATIVE: CASE EVENT DATE: 20190315
